FAERS Safety Report 9190900 (Version 1)
Quarter: 2013Q1

REPORT INFORMATION
  Report Type: Spontaneous
  Country: US (occurrence: US)
  Receive Date: 20130326
  Receipt Date: 20130326
  Transmission Date: 20140127
  Serious: Yes (Other)
  Sender: FDA-Public Use
  Company Number: US-PFIZER INC-2013096421

PATIENT
  Age: 63 Year
  Sex: Male
  Weight: 70.3 kg

DRUGS (2)
  1. CELEBREX [Suspect]
     Indication: RHEUMATOID ARTHRITIS
     Dosage: 200 MG, 1X/DAY
     Dates: end: 2012
  2. ZIAC [Concomitant]
     Indication: HYPERTENSION
     Dosage: 5/6.25 MG, 1X/DAY

REACTIONS (3)
  - Haematochezia [Recovered/Resolved]
  - Gastric haemorrhage [Recovered/Resolved]
  - Gastric polyps [Recovered/Resolved]
